FAERS Safety Report 21163424 (Version 2)
Quarter: 2022Q3

REPORT INFORMATION
  Report Type: Report from Study
  Country: US (occurrence: US)
  Receive Date: 20220802
  Receipt Date: 20220822
  Transmission Date: 20221026
  Serious: Yes (Death, Hospitalization, Other)
  Sender: FDA-Public Use
  Company Number: US-SEATTLE GENETICS-2022SGN07033

PATIENT
  Age: 69 Year
  Sex: Female

DRUGS (2)
  1. TUCATINIB [Suspect]
     Active Substance: TUCATINIB
     Indication: Product used for unknown indication
     Dosage: 150 MG
     Route: 065
  2. TUCATINIB [Suspect]
     Active Substance: TUCATINIB
     Dosage: 150 MG
     Route: 065

REACTIONS (2)
  - Death [Fatal]
  - Diabetes mellitus [Unknown]

NARRATIVE: CASE EVENT DATE: 20220730
